FAERS Safety Report 5926826-0 (Version None)
Quarter: 2008Q4

REPORT INFORMATION
  Report Type: 
  Country: None (occurrence: None)
  Receive Date: 20081022
  Receipt Date: 20080929
  Transmission Date: 20090506
  Serious: No
  Sender: FDA-Public Use
  Company Number: US-BAYER-200834521NA

PATIENT
  Age: 38 Year
  Sex: Female
  Weight: 59 kg

DRUGS (1)
  1. MAGNEVIST [Suspect]
     Indication: NUCLEAR MAGNETIC RESONANCE IMAGING
     Dosage: TOTAL DAILY DOSE: 20 ML  UNIT DOSE: 100 ML
     Dates: start: 20080922, end: 20080922

REACTIONS (2)
  - NAUSEA [None]
  - VOMITING [None]
